FAERS Safety Report 21387008 (Version 1)
Quarter: 2022Q3

REPORT INFORMATION
  Report Type: Spontaneous
  Country: DE (occurrence: DE)
  Receive Date: 20220928
  Receipt Date: 20220928
  Transmission Date: 20221027
  Serious: Yes (Hospitalization)
  Sender: FDA-Public Use
  Company Number: DE-BAYER-2022A133022

PATIENT
  Sex: Male

DRUGS (6)
  1. CIPROFLOXACIN HYDROCHLORIDE [Suspect]
     Active Substance: CIPROFLOXACIN HYDROCHLORIDE
     Indication: Oligohydramnios
     Dosage: 1 DF, QD
     Route: 012
  2. CIPROFLOXACIN HYDROCHLORIDE [Suspect]
     Active Substance: CIPROFLOXACIN HYDROCHLORIDE
     Indication: Pathogen resistance
  3. CIPROFLOXACIN [Suspect]
     Active Substance: CIPROFLOXACIN
     Indication: Oligohydramnios
     Dosage: 500 MG, BID
     Route: 064
  4. CIPROFLOXACIN [Suspect]
     Active Substance: CIPROFLOXACIN
     Indication: Pathogen resistance
  5. MEROPENEM [Suspect]
     Active Substance: MEROPENEM
     Indication: Oligohydramnios
     Route: 012
  6. MEROPENEM [Suspect]
     Active Substance: MEROPENEM
     Indication: Pathogen resistance

REACTIONS (5)
  - Low birth weight baby [Recovered/Resolved]
  - Apgar score low [Recovered/Resolved]
  - Premature baby [None]
  - Umbilical cord blood pH [Recovered/Resolved]
  - Foetal exposure during pregnancy [None]
